FAERS Safety Report 18664730 (Version 2)
Quarter: 2021Q1

REPORT INFORMATION
  Report Type: Report from Study
  Country: BR (occurrence: BR)
  Receive Date: 20201225
  Receipt Date: 20210208
  Transmission Date: 20210419
  Serious: Yes (Other)
  Sender: FDA-Public Use
  Company Number: NVSC2020BR338383

PATIENT

DRUGS (1)
  1. COSENTYX [Suspect]
     Active Substance: SECUKINUMAB
     Indication: PRODUCT USED FOR UNKNOWN INDICATION
     Dosage: UNK
     Route: 065

REACTIONS (7)
  - Feeling abnormal [Recovering/Resolving]
  - Lip blister [Recovering/Resolving]
  - Throat tightness [Recovering/Resolving]
  - Laryngospasm [Recovering/Resolving]
  - Drug hypersensitivity [Recovering/Resolving]
  - Blister [Recovering/Resolving]
  - Sensation of foreign body [Recovering/Resolving]
